FAERS Safety Report 23716313 (Version 2)
Quarter: 2024Q2

REPORT INFORMATION
  Report Type: Spontaneous
  Country: US (occurrence: US)
  Receive Date: 20240408
  Receipt Date: 20240628
  Transmission Date: 20240716
  Serious: No
  Sender: FDA-Public Use
  Company Number: US-LUPIN PHARMACEUTICALS INC.-2024-02817

PATIENT

DRUGS (2)
  1. ALBUTEROL SULFATE [Suspect]
     Active Substance: ALBUTEROL SULFATE
     Indication: Asthma
     Dosage: UNK, BID (2 PUFFS EVERY 12 HOURS)
  2. ALBUTEROL SULFATE [Suspect]
     Active Substance: ALBUTEROL SULFATE
     Dosage: UNK, BID (2 PUFFS EVERY 12 HOURS)

REACTIONS (6)
  - Wrong technique in product usage process [Unknown]
  - Device deposit issue [Unknown]
  - Drug dose omission by device [Unknown]
  - No adverse event [Unknown]
  - Product quality issue [Unknown]
  - Device breakage [Unknown]
